FAERS Safety Report 7488985-0 (Version None)
Quarter: 2011Q2

REPORT INFORMATION
  Report Type: 
  Country: None (occurrence: None)
  Receive Date: 20110518
  Receipt Date: 20110516
  Transmission Date: 20111010
  Serious: Yes (Other)
  Sender: FDA-Public Use
  Company Number: US-PFIZER INC-2011104038

PATIENT
  Sex: Male
  Weight: 71 kg

DRUGS (6)
  1. ACETYLSALICYLIC ACID [Concomitant]
     Dosage: UNK, DAILY
  2. CELEXA [Concomitant]
     Dosage: UNK
  3. TRUVADA [Concomitant]
     Indication: HIV INFECTION
     Dosage: UNK
  4. REYATAZ [Concomitant]
     Indication: HIV INFECTION
     Dosage: UNK
  5. LIPITOR [Suspect]
     Indication: BLOOD CHOLESTEROL INCREASED
     Dosage: 10 MG, 1X/DAY
     Route: 048
     Dates: start: 20100101, end: 20110501
  6. NORVIR [Concomitant]
     Indication: HIV INFECTION
     Dosage: UNK

REACTIONS (1)
  - AMNESIA [None]
